FAERS Safety Report 6700050-6 (Version None)
Quarter: 2010Q2

REPORT INFORMATION
  Report Type: 
  Country: None (occurrence: None)
  Receive Date: 20100428
  Receipt Date: 20100423
  Transmission Date: 20101027
  Serious: Yes (Hospitalization)
  Sender: FDA-Public Use
  Company Number: US-ELI_LILLY_AND_COMPANY-US201004003501

PATIENT
  Sex: Female

DRUGS (28)
  1. PEMETREXED [Suspect]
     Indication: NON-SMALL CELL LUNG CANCER
     Dosage: 500 MG/M2, OTHER
     Route: 042
     Dates: start: 20100107, end: 20100318
  2. PEMETREXED [Suspect]
     Dosage: 500 MG/M2, OTHER
     Route: 042
     Dates: start: 20100318
  3. CARBOPLATIN [Suspect]
     Indication: NON-SMALL CELL LUNG CANCER
     Dosage: 6 D/F, OTHER
     Route: 042
     Dates: start: 20100107, end: 20100318
  4. BEVACIZUMAB [Suspect]
     Indication: NON-SMALL CELL LUNG CANCER
     Dosage: 15 MG/KG, OTHER
     Route: 042
     Dates: start: 20100107
  5. BEVACIZUMAB [Suspect]
     Dosage: 15 MG/KG, OTHER
     Route: 042
     Dates: start: 20100318
  6. LORAZEPAM [Concomitant]
     Indication: NAUSEA
     Dates: start: 20100107
  7. FOLIC ACID [Concomitant]
     Indication: SUPPLEMENTATION THERAPY
     Dates: start: 20091231
  8. VITAMIN B-12 [Concomitant]
     Indication: SUPPLEMENTATION THERAPY
     Dates: start: 20091231
  9. AMLODIPINE [Concomitant]
     Indication: HYPERTENSION
     Dates: start: 20100119
  10. ARIXTRA [Concomitant]
     Dates: start: 20100101
  11. ZOMETA [Concomitant]
     Indication: METASTASIS
     Dates: start: 20100408
  12. DILTIAZEM CD [Concomitant]
  13. ALVEOLEX [Concomitant]
  14. METRONIDAZOLE [Concomitant]
  15. TOLMETIN [Concomitant]
     Indication: RHEUMATOID ARTHRITIS
  16. GLUCOSAMINE /CHOND /03040701/ [Concomitant]
     Indication: RHEUMATOID ARTHRITIS
  17. PREMARIN [Concomitant]
     Indication: HORMONE REPLACEMENT THERAPY
  18. CLARITIN /USA/ [Concomitant]
     Indication: HYPERSENSITIVITY
  19. PREDNISONE TAB [Concomitant]
     Indication: RHEUMATOID ARTHRITIS
     Dates: start: 20100308
  20. SPIRIVA [Concomitant]
     Indication: DYSPNOEA
     Dates: start: 20091101
  21. VITAMIN E [Concomitant]
  22. IRON [Concomitant]
     Indication: ANAEMIA
  23. TESSALON [Concomitant]
     Indication: COUGH
     Dates: start: 20091101
  24. BACTRIM [Concomitant]
     Indication: PROPHYLAXIS
     Dates: start: 20090301
  25. PROCHLORPERAZINE [Concomitant]
     Indication: NAUSEA
     Dates: start: 20090108
  26. DEXAMETHASONE [Concomitant]
     Indication: PROPHYLAXIS
     Dates: start: 20100106
  27. PERI-COLACE [Concomitant]
     Indication: CONSTIPATION
  28. PANTOPRAZOLE [Concomitant]
     Indication: GASTROOESOPHAGEAL REFLUX DISEASE
     Dates: start: 20090114

REACTIONS (1)
  - GASTROINTESTINAL HAEMORRHAGE [None]
